FAERS Safety Report 5638492-2 (Version None)
Quarter: 2008Q1

REPORT INFORMATION
  Report Type: 
  Country: None (occurrence: None)
  Receive Date: 20080226
  Receipt Date: 20070124
  Transmission Date: 20080703
  Serious: No
  Sender: FDA-Public Use
  Company Number: A0636905A

PATIENT
  Sex: Female

DRUGS (1)
  1. IMITREX [Suspect]
     Indication: DRUG USE FOR UNKNOWN INDICATION
     Route: 065

REACTIONS (2)
  - HYPERSENSITIVITY [None]
  - RASH [None]
